FAERS Safety Report 16845517 (Version 2)
Quarter: 2020Q1

REPORT INFORMATION
  Report Type: Other
  Country: US (occurrence: JP)
  Receive Date: 20190924
  Receipt Date: 20200109
  Transmission Date: 20200409
  Serious: Yes (Other)
  Sender: FDA-Public Use
  Company Number: US-SUNOVION-2019SUN003956

PATIENT
  Age: 77 Year
  Sex: Male

DRUGS (1)
  1. INDACATEROL AND GLYCOPYRROLATE [Suspect]
     Active Substance: GLYCOPYRROLATE\INDACATEROL MALEATE
     Indication: COMBINED PULMONARY FIBROSIS AND EMPHYSEMA
     Dosage: UNK
     Route: 055

REACTIONS (1)
  - Lung adenocarcinoma [Unknown]
